FAERS Safety Report 5402166-3 (Version None)
Quarter: 2007Q3

REPORT INFORMATION
  Report Type: 
  Country: None (occurrence: None)
  Receive Date: 20070730
  Receipt Date: 20070721
  Transmission Date: 20080115
  Serious: Yes (Hospitalization)
  Sender: FDA-Public Use
  Company Number: 163-21880-06090391

PATIENT
  Age: 70 Year
  Sex: Female
  Weight: 68 kg

DRUGS (3)
  1. REVLIMID [Suspect]
     Indication: MULTIPLE MYELOMA
     Dosage: 25 MG, DAILY ON DAYS 1-21 Q28D, ORAL
     Route: 048
     Dates: start: 20060330, end: 20060621
  2. DEXAMETHASONE TAB [Suspect]
     Indication: MULTIPLE MYELOMA
     Dosage: 40 MG, QD ON DAYS 1-4, 9-12, 17-20 EVRY 28 DAYS, ORAL
     Route: 048
     Dates: start: 20060330, end: 20060613
  3. INSULIN [Suspect]
     Indication: DIABETES MELLITUS
     Dosage: 70/30, SUBCUTANEOUS
     Route: 058
     Dates: start: 20060608

REACTIONS (11)
  - ASTHENIA [None]
  - BLOOD CALCIUM DECREASED [None]
  - BLOOD CHLORIDE DECREASED [None]
  - BLOOD PHOSPHORUS DECREASED [None]
  - BLOOD UREA INCREASED [None]
  - DEHYDRATION [None]
  - DIABETIC KETOACIDOSIS [None]
  - HYPERKALAEMIA [None]
  - HYPONATRAEMIA [None]
  - NEUROPATHY [None]
  - POLYURIA [None]
